FAERS Safety Report 8825694 (Version 1)
Quarter: 2012Q4

REPORT INFORMATION
  Report Type: 
  Country: IT (occurrence: IT)
  Receive Date: 20121004
  Receipt Date: 20121004
  Transmission Date: 20130627
  Serious: Yes (Hospitalization)
  Sender: FDA-Public Use
  Company Number: IT-FRI-1000039123

PATIENT
  Age: 79 Year
  Sex: Female

DRUGS (6)
  1. NEBIVOLOL [Suspect]
     Route: 048
     Dates: start: 20120101, end: 20120901
  2. LOSARTAN [Suspect]
     Indication: HYPERTENSION
     Route: 048
     Dates: start: 20120101, end: 20120901
  3. PLAVIX [Concomitant]
  4. LEXOTAN [Concomitant]
  5. DULOXETINE [Concomitant]
  6. STILNOX [Concomitant]

REACTIONS (2)
  - Syncope [Unknown]
  - Hyponatraemia [Unknown]
